FAERS Safety Report 14626578 (Version 1)
Quarter: 2018Q1

REPORT INFORMATION
  Report Type: Report from Study
  Country: JP (occurrence: JP)
  Receive Date: 20180312
  Receipt Date: 20180312
  Transmission Date: 20180509
  Serious: Yes (Death)
  Sender: FDA-Public Use
  Company Number: JP-SA-THYM-1001600

PATIENT
  Age: 70 Year
  Sex: Female
  Weight: 44 kg

DRUGS (3)
  1. THYMOGLOBULINE [Suspect]
     Active Substance: LAPINE T-LYMPHOCYTE IMMUNE GLOBULIN
     Indication: APLASTIC ANAEMIA
     Dosage: 160 MG, QD
     Route: 042
     Dates: start: 20090518, end: 20090522
  2. PREDNISOLONE ACETATE. [Concomitant]
     Active Substance: PREDNISOLONE ACETATE
     Indication: PREMEDICATION
     Dosage: UNK
     Dates: start: 20090530, end: 20090622
  3. METHYLPREDNISOLONE SODIUM SUCCINATE. [Concomitant]
     Active Substance: METHYLPREDNISOLONE SODIUM SUCCINATE
     Indication: PREMEDICATION
     Dosage: UNK
     Dates: start: 20090518, end: 20090529

REACTIONS (3)
  - Liver disorder [Fatal]
  - Delirium [Fatal]
  - Pyrexia [Fatal]

NARRATIVE: CASE EVENT DATE: 20090621
